FAERS Safety Report 5448124-4 (Version None)
Quarter: 2007Q3

REPORT INFORMATION
  Report Type: 
  Country: None (occurrence: None)
  Receive Date: 20070803
  Receipt Date: 20070611
  Transmission Date: 20080115
  Serious: No
  Sender: FDA-Public Use
  Company Number: 200711811BWH

PATIENT
  Sex: Male

DRUGS (1)
  1. NEXAVAR [Suspect]
     Indication: DRUG USE FOR UNKNOWN INDICATION
     Dosage: 400 MG,BID,ORAL
     Route: 048
     Dates: start: 20070501

REACTIONS (4)
  - ERYTHEMA [None]
  - FATIGUE [None]
  - PAIN IN EXTREMITY [None]
  - SKIN FISSURES [None]
